FAERS Safety Report 19241090 (Version 1)
Quarter: 2021Q2

REPORT INFORMATION
  Report Type: Spontaneous
  Country: US (occurrence: US)
  Receive Date: 20210510
  Receipt Date: 20210510
  Transmission Date: 20210717
  Serious: Yes (Life-Threatening, Hospitalization, Other)
  Sender: FDA-Public Use
  Company Number: None

PATIENT
  Age: 75 Year
  Sex: Female
  Weight: 86 kg

DRUGS (2)
  1. BAMLANIVIMAB 700MG [Suspect]
     Active Substance: BAMLANIVIMAB
     Indication: SARS-COV-2 TEST POSITIVE
     Route: 042
     Dates: start: 20210505, end: 20210505
  2. ETESEVIMAB 700MG [Suspect]
     Active Substance: ETESEVIMAB
     Indication: SARS-COV-2 TEST POSITIVE
     Route: 042
     Dates: start: 20210505, end: 20210505

REACTIONS (2)
  - Acute pulmonary oedema [None]
  - Respiratory failure [None]

NARRATIVE: CASE EVENT DATE: 20210505
